FAERS Safety Report 12461522 (Version 1)
Quarter: 2016Q2

REPORT INFORMATION
  Report Type: Report from Study
  Country: JP (occurrence: JP)
  Receive Date: 20160613
  Receipt Date: 20160613
  Transmission Date: 20160815
  Serious: Yes (Death, Hospitalization)
  Sender: FDA-Public Use
  Company Number: JP-EISAI MEDICAL RESEARCH-EC-2016-017589

PATIENT
  Age: 53 Year
  Sex: Female
  Weight: 76 kg

DRUGS (13)
  1. GASTER [Concomitant]
     Active Substance: FAMOTIDINE
  2. GLYCYRON [Concomitant]
     Active Substance: AMMONIUM GLYCYRRHIZATE\GLYCINE\METHIONINE
  3. HALAVEN [Suspect]
     Active Substance: ERIBULIN MESYLATE
     Route: 041
     Dates: start: 20151224, end: 20160114
  4. FERROMIA [Concomitant]
     Active Substance: FERROUS CITRATE
  5. HALAVEN [Suspect]
     Active Substance: ERIBULIN MESYLATE
     Indication: INVASIVE BREAST CARCINOMA
     Route: 041
     Dates: start: 20150917, end: 20151029
  6. MAGMITT [Concomitant]
     Active Substance: MAGNESIUM OXIDE
  7. HALAVEN [Suspect]
     Active Substance: ERIBULIN MESYLATE
     Route: 041
     Dates: start: 20151105, end: 20151210
  8. CEPHARANTHINE [Concomitant]
     Active Substance: CEPHARANTHINE
  9. FENTOS [Concomitant]
     Active Substance: FENTANYL
  10. LEUCON [Concomitant]
  11. LAXOBERON [Concomitant]
     Active Substance: SODIUM PICOSULFATE
  12. POSTERISAN [Concomitant]
     Active Substance: LIDOCAINE
  13. ZYPREXA [Concomitant]
     Active Substance: OLANZAPINE

REACTIONS (3)
  - Hypercalcaemia [Recovered/Resolved]
  - Interstitial lung disease [Not Recovered/Not Resolved]
  - Death [Fatal]

NARRATIVE: CASE EVENT DATE: 2016
